FAERS Safety Report 5818472-4 (Version None)
Quarter: 2008Q3

REPORT INFORMATION
  Report Type: 
  Country: None (occurrence: None)
  Receive Date: 20080722
  Receipt Date: 20080717
  Transmission Date: 20090109
  Serious: Yes (Hospitalization, Other)
  Sender: FDA-Public Use
  Company Number: US-MERCK-0707USA02683

PATIENT
  Age: 52 Year
  Sex: Female

DRUGS (2)
  1. FOSAMAX [Suspect]
     Indication: OSTEOPOROSIS PROPHYLAXIS
     Route: 048
     Dates: start: 19990101, end: 20060705
  2. ACTONEL [Suspect]
     Route: 065
     Dates: start: 20060601, end: 20060601

REACTIONS (28)
  - ACUTE SINUSITIS [None]
  - ANAEMIA [None]
  - ANXIETY [None]
  - BLOOD CHOLESTEROL INCREASED [None]
  - BLOOD DISORDER [None]
  - BREAST CANCER [None]
  - BRONCHITIS [None]
  - CEREBROVASCULAR ACCIDENT [None]
  - DENTAL CARIES [None]
  - DEPRESSION [None]
  - DRUG HYPERSENSITIVITY [None]
  - FISTULA DISCHARGE [None]
  - GENITAL HERPES [None]
  - HERPES ZOSTER [None]
  - HYPERTENSION [None]
  - MOUTH ULCERATION [None]
  - MYODESOPSIA [None]
  - NASAL ULCER [None]
  - ORAL INFECTION [None]
  - OSTEONECROSIS [None]
  - OTITIS EXTERNA [None]
  - PAIN IN JAW [None]
  - PHOTOPSIA [None]
  - RASH [None]
  - RESORPTION BONE INCREASED [None]
  - RHEUMATOID ARTHRITIS [None]
  - TOOTH ABSCESS [None]
  - URINARY TRACT INFECTION [None]
